FAERS Safety Report 16884777 (Version 1)
Quarter: 2019Q4

REPORT INFORMATION
  Report Type: Spontaneous
  Country: US (occurrence: US)
  Receive Date: 20190808
  Receipt Date: 20190808
  Transmission Date: 20200122
  Serious: Yes (Hospitalization)
  Sender: FDA-Public Use
  Company Number: None

PATIENT
  Age: 52 Year
  Sex: Male

DRUGS (11)
  1. SUPER B [Concomitant]
  2. MULTIVIT [Concomitant]
     Active Substance: VITAMINS
  3. EZETIMIBE. [Concomitant]
     Active Substance: EZETIMIBE
  4. COENZYME Q10 [Concomitant]
     Active Substance: UBIDECARENONE
  5. D3 SUPER [Concomitant]
  6. MELOXICAM. [Concomitant]
     Active Substance: MELOXICAM
  7. PRALUENT [Concomitant]
     Active Substance: ALIROCUMAB
  8. ROSUVASTATIN. [Concomitant]
     Active Substance: ROSUVASTATIN
  9. REPATHA [Suspect]
     Active Substance: EVOLOCUMAB
     Indication: TYPE IIA HYPERLIPIDAEMIA
     Route: 058
     Dates: start: 20190718
  10. ASPIRIN. [Concomitant]
     Active Substance: ASPIRIN
  11. VITAMIN D3 [Concomitant]
     Active Substance: CHOLECALCIFEROL

REACTIONS (1)
  - Hip surgery [None]

NARRATIVE: CASE EVENT DATE: 20190805
